FAERS Safety Report 12800879 (Version 1)
Quarter: 2016Q4

REPORT INFORMATION
  Report Type: Report from Study
  Country: CN (occurrence: CN)
  Receive Date: 20161002
  Receipt Date: 20161002
  Transmission Date: 20170207
  Serious: Yes (Other)
  Sender: FDA-Public Use
  Company Number: PHHY2016CN132029

PATIENT
  Age: 51 Year
  Sex: Male

DRUGS (66)
  1. MYFORTIC [Suspect]
     Active Substance: MYCOPHENOLATE SODIUM
     Indication: RENAL TRANSPLANT
     Dosage: 720 MG, QD
     Route: 065
     Dates: start: 20160103, end: 20160103
  2. ADAX//ALPRAZOLAM [Concomitant]
     Indication: SEDATION
     Dosage: 0.4 MG, QN
     Route: 048
     Dates: start: 20160104, end: 20160118
  3. SODIUM CHLORIDE. [Concomitant]
     Active Substance: SODIUM CHLORIDE
     Indication: ELECTROLYTE SUBSTITUTION THERAPY
     Dosage: 500 ML, SOS
     Route: 042
     Dates: start: 20160103, end: 20160103
  4. RECOMBINANT HUMAN ERYTHROPOIETIN [Concomitant]
     Active Substance: ERYTHROPOIETIN
     Indication: PLATELET DISORDER
     Dosage: 6000 IU, W3D
     Route: 042
     Dates: start: 20160107, end: 20160118
  5. IMIPENEM [Concomitant]
     Active Substance: IMIPENEM
     Indication: INFECTION PROPHYLAXIS
     Dosage: 500 MG, SOS
     Route: 042
     Dates: start: 20160103, end: 20160103
  6. IMIPENEM [Concomitant]
     Active Substance: IMIPENEM
     Dosage: 500 MG, Q8H
     Route: 042
     Dates: start: 20160103, end: 20160107
  7. INDOMETACIN [Concomitant]
     Active Substance: INDOMETHACIN
     Indication: INFLAMMATION
     Dosage: 50 MG, SOS
     Route: 054
     Dates: start: 20160107, end: 20160107
  8. PREDNISONE. [Suspect]
     Active Substance: PREDNISONE
     Indication: RENAL TRANSPLANT
     Dosage: 15 MG, QD
     Route: 065
     Dates: start: 20160112, end: 20160118
  9. GLUCOSE [Concomitant]
     Active Substance: DEXTROSE
     Indication: ELECTROLYTE SUBSTITUTION THERAPY
     Dosage: 500 ML, SOS
     Route: 042
     Dates: start: 20160107, end: 20160107
  10. DIAZEPAM. [Concomitant]
     Active Substance: DIAZEPAM
     Indication: SEDATION
     Dosage: 30 MG, SOS
     Route: 042
     Dates: start: 20160107, end: 20160107
  11. AMPHOTERICIN B, LIPOSOME [Concomitant]
     Active Substance: AMPHOTERICIN B
     Indication: INFECTION PROPHYLAXIS
     Dosage: 10 MG, QD
     Route: 042
     Dates: start: 20160104, end: 20160111
  12. SODIUM CHLORIDE. [Concomitant]
     Active Substance: SODIUM CHLORIDE
     Dosage: 1000 ML, UNK
     Route: 042
     Dates: start: 20160104, end: 20160104
  13. SODIUM CHLORIDE. [Concomitant]
     Active Substance: SODIUM CHLORIDE
     Dosage: 500 ML, SOS
     Route: 042
     Dates: start: 20160108, end: 20160108
  14. SODIUM PHOSPHATE [Concomitant]
     Active Substance: SODIUM PHOSPHATE
     Indication: GASTRIC LAVAGE
     Dosage: 133 ML, SOS
     Route: 065
     Dates: start: 20160103, end: 20160103
  15. INSULIN [Concomitant]
     Active Substance: INSULIN NOS
     Indication: ELECTROLYTE SUBSTITUTION THERAPY
     Dosage: 18 IU, SOS
     Route: 042
     Dates: start: 20160103, end: 20160103
  16. MYFORTIC [Suspect]
     Active Substance: MYCOPHENOLATE SODIUM
     Dosage: 1440 MG, QD
     Route: 065
     Dates: start: 20160104, end: 20160107
  17. METHYLPREDNISOLONE. [Suspect]
     Active Substance: METHYLPREDNISOLONE
     Dosage: 320 MG, QD
     Route: 065
     Dates: start: 20160106, end: 20160106
  18. METHYLPREDNISOLONE. [Suspect]
     Active Substance: METHYLPREDNISOLONE
     Dosage: 40 MG, QD
     Route: 065
     Dates: start: 20160107, end: 20160107
  19. SCOPOLAMINE [Concomitant]
     Active Substance: SCOPOLAMINE
     Indication: SEDATION
     Dosage: 0.3 MG, SOS
     Route: 030
     Dates: start: 20160107, end: 20160107
  20. HALOPERIDOL. [Concomitant]
     Active Substance: HALOPERIDOL
     Indication: SCHIZOPHRENIA
     Dosage: 12.5 MG, SOS
     Route: 030
     Dates: start: 20160107, end: 20160107
  21. GANCICLOVIR. [Concomitant]
     Active Substance: GANCICLOVIR
     Indication: VIRAL INFECTION
     Dosage: 500 MG, TID
     Route: 048
     Dates: start: 20160116
  22. CLONIDINE. [Concomitant]
     Active Substance: CLONIDINE
     Indication: HYPERTENSION
     Dosage: 75 UG, SOS
     Route: 048
     Dates: start: 20160115, end: 20160115
  23. INDOMETACIN [Concomitant]
     Active Substance: INDOMETHACIN
     Indication: ANALGESIC THERAPY
  24. MUCOSOLVAN [Concomitant]
     Active Substance: AMBROXOL HYDROCHLORIDE
     Indication: PRODUCTIVE COUGH
     Dosage: 30 MG, QD
     Route: 048
     Dates: start: 20160110, end: 20160116
  25. TALCID [Concomitant]
     Active Substance: HYDROTALCITE
     Indication: GASTRITIS PROPHYLAXIS
     Dosage: 1000 MG, QD
     Route: 048
     Dates: start: 20160104
  26. ESOMEPRAZOLE MAGNESIUM. [Concomitant]
     Active Substance: ESOMEPRAZOLE MAGNESIUM
     Indication: GASTRITIS PROPHYLAXIS
     Dosage: 40 MG, QD
     Route: 042
     Dates: start: 20160104, end: 20160115
  27. CALCINATE//CALCIUM GLUCONATE [Concomitant]
     Indication: HYPOCALCAEMIA
     Dosage: 3000 MG, QD
     Route: 042
     Dates: start: 20160104, end: 20160105
  28. SODIUM BICARBONATE. [Concomitant]
     Active Substance: SODIUM BICARBONATE
     Indication: URINE ALKALINISATION THERAPY
     Dosage: 1000 MG, BID
     Route: 048
     Dates: start: 20160118
  29. SODIUM BICARBONATE. [Concomitant]
     Active Substance: SODIUM BICARBONATE
     Indication: URINE ALKALINISATION THERAPY
     Dosage: 500 ML, SOS
     Route: 042
     Dates: start: 20160103, end: 20160103
  30. TEICOPLANIN [Concomitant]
     Active Substance: TEICOPLANIN
     Indication: INFECTION PROPHYLAXIS
     Dosage: 200 MG, QD
     Route: 042
     Dates: start: 20160106, end: 20160115
  31. LEVOFLOXACIN. [Concomitant]
     Active Substance: LEVOFLOXACIN
     Indication: INFECTION PROPHYLAXIS
     Dosage: 400 MG, QD
     Route: 042
     Dates: start: 20160111, end: 20160116
  32. FUROSEMIDE. [Concomitant]
     Active Substance: FUROSEMIDE
     Indication: POLYURIA
     Dosage: 80 MG, SOS
     Route: 042
     Dates: start: 20160103, end: 20160103
  33. FUROSEMIDE. [Concomitant]
     Active Substance: FUROSEMIDE
     Dosage: 40 MG, QD
     Route: 042
     Dates: start: 20160109, end: 20160110
  34. BASILIXIMAB [Suspect]
     Active Substance: BASILIXIMAB
     Dosage: 20 MG, QD
     Route: 065
     Dates: start: 20160107, end: 20160107
  35. GLUCOSE [Concomitant]
     Active Substance: DEXTROSE
     Indication: ELECTROLYTE SUBSTITUTION THERAPY
     Dosage: 500 ML, SOS
     Route: 042
     Dates: start: 20160107, end: 20160107
  36. OLANZAPINE. [Concomitant]
     Active Substance: OLANZAPINE
     Indication: SCHIZOPHRENIA
     Dosage: 5 MG, SOS
     Route: 048
     Dates: start: 20160107, end: 20160107
  37. OLANZAPINE. [Concomitant]
     Active Substance: OLANZAPINE
     Dosage: 5 MG, QN
     Route: 048
     Dates: start: 20160107
  38. DILTIAZEM HYDROCHLORIDE. [Concomitant]
     Active Substance: DILTIAZEM HYDROCHLORIDE
     Indication: BLOOD DISORDER
     Dosage: 30 MG, BID
     Route: 048
     Dates: start: 20160104
  39. DIAZEPAM. [Concomitant]
     Active Substance: DIAZEPAM
     Dosage: 2.5 MG, SOS
     Route: 048
     Dates: start: 20160108, end: 20160108
  40. SODIUM CHLORIDE. [Concomitant]
     Active Substance: SODIUM CHLORIDE
     Dosage: 500 ML, SOS
     Route: 042
     Dates: start: 20160112, end: 20160112
  41. DIAMMONIUM GLYCYRRHIZINATE [Concomitant]
     Active Substance: HERBALS
     Indication: PROPHYLAXIS
     Dosage: 150 MG, TID
     Route: 048
     Dates: start: 20160111
  42. VITAMIN B6 [Concomitant]
     Active Substance: PYRIDOXINE HYDROCHLORIDE
     Indication: PRODUCT USED FOR UNKNOWN INDICATION
     Dosage: 200 MG, SOS
     Route: 042
     Dates: start: 20160107, end: 20160107
  43. MAGNESII SULFAS [Concomitant]
     Indication: ELECTROLYTE SUBSTITUTION THERAPY
     Dosage: 4.8 ML, SOS
     Route: 042
     Dates: start: 20160103, end: 20160103
  44. BASILIXIMAB [Suspect]
     Active Substance: BASILIXIMAB
     Indication: RENAL TRANSPLANT
     Dosage: 20 MG, QD
     Route: 065
     Dates: start: 20160103, end: 20160103
  45. PREDNISONE. [Suspect]
     Active Substance: PREDNISONE
     Dosage: 10 MG, QD
     Route: 065
     Dates: start: 20160118
  46. NIFEDIPINE. [Concomitant]
     Active Substance: NIFEDIPINE
     Indication: HYPERTENSION
     Dosage: 30 MG, QD
     Route: 048
     Dates: start: 20160108
  47. DIAZEPAM. [Concomitant]
     Active Substance: DIAZEPAM
     Indication: SEDATION
     Dosage: 5 MG, SOS
     Route: 048
     Dates: start: 20160103, end: 20160103
  48. SODIUM CHLORIDE. [Concomitant]
     Active Substance: SODIUM CHLORIDE
     Dosage: 500 ML, SOS
     Route: 042
     Dates: start: 20160105, end: 20160105
  49. SODIUM CHLORIDE. [Concomitant]
     Active Substance: SODIUM CHLORIDE
     Dosage: 1000 ML, UNK
     Route: 042
     Dates: start: 20160107, end: 20160107
  50. LEUCOGEN [Concomitant]
     Active Substance: LEUCOGEN
     Indication: PLATELET DISORDER
     Dosage: 40 MG, TID
     Route: 048
     Dates: start: 20160108, end: 20160118
  51. CASPOFUNGIN ACETATE [Concomitant]
     Active Substance: CASPOFUNGIN ACETATE
     Indication: INFECTION PROPHYLAXIS
     Dosage: 50 MG, SOS
     Route: 042
     Dates: start: 20160103, end: 20160103
  52. MYFORTIC [Suspect]
     Active Substance: MYCOPHENOLATE SODIUM
     Dosage: 1080 MG, QD
     Route: 065
     Dates: start: 20160108
  53. TACROLIMUS. [Suspect]
     Active Substance: TACROLIMUS
     Indication: RENAL TRANSPLANT
     Dosage: UNK
     Route: 065
     Dates: start: 20160104
  54. METHYLPREDNISOLONE. [Suspect]
     Active Substance: METHYLPREDNISOLONE
     Dosage: 20 MG, QD
     Route: 065
     Dates: start: 20160108, end: 20160112
  55. POTASSIUM CHLORIDE. [Concomitant]
     Active Substance: POTASSIUM CHLORIDE
     Dosage: 10 ML, SOS
     Route: 042
     Dates: start: 20160107, end: 20160107
  56. DEXA//DEXAMETHASONE [Concomitant]
     Indication: PROPHYLAXIS
     Dosage: 10 MG, SOS
     Route: 042
     Dates: start: 20160103, end: 20160103
  57. SULFAMETHOXAZOLE [Concomitant]
     Active Substance: SULFAMETHOXAZOLE
     Indication: INFECTION PROPHYLAXIS
     Dosage: 240 MG, QD
     Route: 048
     Dates: start: 20160118
  58. MANNITOL. [Concomitant]
     Active Substance: MANNITOL
     Indication: PROPHYLAXIS
     Dosage: 125 ML, SOS
     Route: 042
     Dates: start: 20160103, end: 20160103
  59. IMIPENEM [Concomitant]
     Active Substance: IMIPENEM
     Dosage: 500 MG, Q12H
     Route: 042
     Dates: start: 20160107, end: 20160107
  60. AMIKACIN [Concomitant]
     Active Substance: AMIKACIN
     Indication: PROPHYLAXIS
     Dosage: 400 MG, SOS
     Route: 042
     Dates: start: 20160103, end: 20160103
  61. METHYLPREDNISOLONE. [Suspect]
     Active Substance: METHYLPREDNISOLONE
     Indication: RENAL TRANSPLANT
     Dosage: 660 MG, QD
     Route: 065
     Dates: start: 20160104, end: 20160105
  62. POTASSIUM CHLORIDE. [Concomitant]
     Active Substance: POTASSIUM CHLORIDE
     Indication: ELECTROLYTE SUBSTITUTION THERAPY
     Dosage: 12 ML, SOS
     Route: 042
     Dates: start: 20160103, end: 20160103
  63. HEPARIN SODIUM. [Concomitant]
     Active Substance: HEPARIN SODIUM
     Indication: PROPHYLAXIS
     Dosage: 12500 IU, W2D2
     Route: 042
     Dates: start: 20160105, end: 20160118
  64. LIDOCAINE. [Concomitant]
     Active Substance: LIDOCAINE
     Indication: LOCAL ANAESTHESIA
     Dosage: 25 ML, SOS
     Route: 061
     Dates: start: 20160114, end: 20160114
  65. VITAMIN B4 [Concomitant]
     Indication: LEUKOPENIA
     Dosage: 20 MG, TID
     Route: 048
     Dates: start: 20160108, end: 20160118
  66. VITAMIIN C [Concomitant]
     Active Substance: ASCORBIC ACID
     Indication: PRODUCT USED FOR UNKNOWN INDICATION
     Dosage: 2000 MG, SOS
     Route: 042
     Dates: start: 20160107, end: 20160107

REACTIONS (10)
  - Protein urine present [Unknown]
  - Blood creatinine increased [Unknown]
  - Blood urea increased [Unknown]
  - Blood glucose increased [Unknown]
  - Bilirubin conjugated increased [Unknown]
  - Haemoglobin decreased [Unknown]
  - Alanine aminotransferase increased [Unknown]
  - Parvovirus infection [Recovering/Resolving]
  - Lymphocyte count decreased [Unknown]
  - Blood urine present [Unknown]

NARRATIVE: CASE EVENT DATE: 20160106
